FAERS Safety Report 19731141 (Version 2)
Quarter: 2021Q3

REPORT INFORMATION
  Report Type: Report from Study
  Country: US (occurrence: US)
  Receive Date: 20210821
  Receipt Date: 20210928
  Transmission Date: 20211014
  Serious: Yes (Hospitalization, Other)
  Sender: FDA-Public Use
  Company Number: NVSC2021US189577

PATIENT
  Sex: Female

DRUGS (1)
  1. KISQALI [Suspect]
     Active Substance: RIBOCICLIB
     Indication: BREAST CANCER METASTATIC
     Dosage: UNK
     Route: 065

REACTIONS (6)
  - Blood creatinine increased [Unknown]
  - Breast cancer metastatic [Unknown]
  - Heart rate irregular [Unknown]
  - Anaemia [Unknown]
  - Malignant neoplasm progression [Unknown]
  - Blood test abnormal [Unknown]
